FAERS Safety Report 9006208 (Version 1)
Quarter: 2013Q1

REPORT INFORMATION
  Report Type: Spontaneous
  Country: US (occurrence: US)
  Receive Date: 20130110
  Receipt Date: 20130110
  Transmission Date: 20140127
  Serious: Yes (Hospitalization)
  Sender: FDA-Public Use
  Company Number: US-009507513-1301USA001625

PATIENT
  Sex: Female

DRUGS (4)
  1. SINGULAIR [Suspect]
  2. ADVAIR [Suspect]
     Dosage: DISKUS 100/50 (1 PUFF TWICE PER DAY RESPIRATORY (INHALATION))
  3. [THERAPY UNSPECIFIED] [Concomitant]
     Indication: CHRONIC OBSTRUCTIVE PULMONARY DISEASE
  4. ALBUTEROL [Concomitant]

REACTIONS (10)
  - Upper respiratory tract infection [Unknown]
  - Throat irritation [Unknown]
  - Osteoporosis [Unknown]
  - Musculoskeletal pain [Unknown]
  - Joint stiffness [Unknown]
  - Headache [Unknown]
  - Cough [Unknown]
  - Candida infection [Unknown]
  - Bone density decreased [Unknown]
  - Body height decreased [Unknown]
